FAERS Safety Report 6114840-4 (Version None)
Quarter: 2009Q1

REPORT INFORMATION
  Report Type: 
  Country: None (occurrence: None)
  Receive Date: 20090313
  Receipt Date: 20090304
  Transmission Date: 20090719
  Serious: Yes (Death)
  Sender: FDA-Public Use
  Company Number: US-GILEAD-2009-0020571

PATIENT
  Sex: Male
  Weight: 123.49 kg

DRUGS (10)
  1. ATRIPLA [Suspect]
     Indication: HIV INFECTION
     Dates: start: 20071012, end: 20081030
  2. AVANDIA [Concomitant]
     Indication: DIABETES MELLITUS
     Dates: start: 20050802
  3. DIGOXIN [Concomitant]
     Dates: start: 20050805
  4. CLONIDINE [Concomitant]
     Indication: HYPERTENSION
     Dates: start: 20071218
  5. BENICAR [Concomitant]
     Indication: HYPERTENSION
     Dates: start: 20050802
  6. TRICOR [Concomitant]
     Indication: LIPIDS
     Dates: start: 20050802
  7. LASIX [Concomitant]
     Indication: OEDEMA
     Dates: start: 20070921
  8. COUMADIN [Concomitant]
     Dates: start: 20071211
  9. TOPROL-XL [Concomitant]
     Indication: HYPERTENSION
     Dates: start: 20050802
  10. ACYCLOVIR [Concomitant]
     Indication: HERPES SIMPLEX
     Dates: start: 20050802

REACTIONS (1)
  - RENAL FAILURE ACUTE [None]
